FAERS Safety Report 5565397-8 (Version None)
Quarter: 2007Q4

REPORT INFORMATION
  Report Type: 
  Country: None (occurrence: None)
  Receive Date: 20071218
  Receipt Date: 20050428
  Transmission Date: 20080405
  Serious: Yes (Death, Hospitalization)
  Sender: FDA-Public Use
  Company Number: US-ROCHE-403447

PATIENT
  Age: 35 Year
  Sex: Male

DRUGS (5)
  1. FUZEON [Suspect]
     Indication: HIV INFECTION
     Dosage: ROUTE: INJECTION.
     Route: 050
  2. UNSPECIFIED MEDICATIONS [Concomitant]
  3. ANTIVIRAL AGENT [Concomitant]
     Route: 048
  4. ANTIVIRAL AGENT [Concomitant]
     Route: 042
  5. UNSPECIFIED MEDICATION [Concomitant]

REACTIONS (6)
  - AIDS RELATED COMPLICATION [None]
  - CYTOMEGALOVIRUS CHORIORETINITIS [None]
  - DYSPNOEA [None]
  - KAPOSI'S SARCOMA [None]
  - MYCOBACTERIUM AVIUM COMPLEX INFECTION [None]
  - RENAL FAILURE [None]
